FAERS Safety Report 12104672 (Version 2)
Quarter: 2016Q1

REPORT INFORMATION
  Report Type: Report from Study
  Country: JP (occurrence: JP)
  Receive Date: 20160223
  Receipt Date: 20160330
  Transmission Date: 20160526
  Serious: Yes (Hospitalization)
  Sender: FDA-Public Use
  Company Number: JP-ASTELLAS-2009JP000429

PATIENT
  Age: 38 Year
  Sex: Female
  Weight: 57 kg

DRUGS (50)
  1. PREDNISOLONE. [Suspect]
     Active Substance: PREDNISOLONE
     Route: 048
     Dates: start: 20080430, end: 20080528
  2. PREDNISOLONE. [Suspect]
     Active Substance: PREDNISOLONE
     Route: 048
     Dates: start: 20090422, end: 20090623
  3. PREDNISOLONE. [Suspect]
     Active Substance: PREDNISOLONE
     Route: 048
     Dates: start: 20110119, end: 20110625
  4. PREDNISOLONE. [Suspect]
     Active Substance: PREDNISOLONE
     Route: 048
     Dates: start: 20120802, end: 20120829
  5. FOSAMAC [Concomitant]
     Active Substance: ALENDRONATE SODIUM
     Route: 048
     Dates: end: 20120201
  6. FOSAMAC [Concomitant]
     Active Substance: ALENDRONATE SODIUM
     Route: 048
     Dates: start: 20120829
  7. TACROLIMUS. [Suspect]
     Active Substance: TACROLIMUS
     Route: 048
     Dates: start: 20130617
  8. PREDNISOLONE. [Suspect]
     Active Substance: PREDNISOLONE
     Route: 048
     Dates: start: 20080828, end: 20081022
  9. PREDNISOLONE. [Suspect]
     Active Substance: PREDNISOLONE
     Route: 048
     Dates: start: 20110626, end: 20111101
  10. PREDNISOLONE. [Suspect]
     Active Substance: PREDNISOLONE
     Route: 048
     Dates: start: 20130826, end: 20130929
  11. FAMOTIDINE. [Concomitant]
     Active Substance: FAMOTIDINE
     Indication: PROPHYLAXIS
     Route: 048
     Dates: end: 20151109
  12. TACROLIMUS. [Suspect]
     Active Substance: TACROLIMUS
     Route: 048
     Dates: start: 20080328, end: 20130616
  13. PREDNISOLONE. [Suspect]
     Active Substance: PREDNISOLONE
     Indication: LUPUS NEPHRITIS
     Route: 048
     Dates: start: 20080313, end: 20080319
  14. PREDNISOLONE. [Suspect]
     Active Substance: PREDNISOLONE
     Route: 048
     Dates: start: 20080626, end: 20080723
  15. PREDNISOLONE. [Suspect]
     Active Substance: PREDNISOLONE
     Route: 048
     Dates: start: 20080724, end: 20080827
  16. PREDNISOLONE. [Suspect]
     Active Substance: PREDNISOLONE
     Route: 048
     Dates: start: 20131216, end: 20140601
  17. FOSAMAC [Concomitant]
     Active Substance: ALENDRONATE SODIUM
     Indication: PROPHYLAXIS
     Route: 048
  18. LOXOPROFEN [Concomitant]
     Active Substance: LOXOPROFEN
     Indication: DYSMENORRHOEA
     Route: 048
     Dates: start: 20100120, end: 20110724
  19. PREDNISOLONE. [Suspect]
     Active Substance: PREDNISOLONE
     Route: 048
     Dates: start: 20080410, end: 20080429
  20. PREDNISOLONE. [Suspect]
     Active Substance: PREDNISOLONE
     Route: 048
     Dates: start: 20090826, end: 20091027
  21. PREDNISOLONE. [Suspect]
     Active Substance: PREDNISOLONE
     Route: 048
     Dates: start: 20100120, end: 20110118
  22. PREDNISOLONE. [Suspect]
     Active Substance: PREDNISOLONE
     Route: 048
     Dates: start: 20120830, end: 20121205
  23. FERROMIA [Concomitant]
     Active Substance: FERROUS CITRATE
     Route: 048
     Dates: start: 20081217, end: 20090203
  24. FERROMIA [Concomitant]
     Active Substance: FERROUS CITRATE
     Route: 048
     Dates: start: 20090415, end: 20090929
  25. TACROLIMUS. [Suspect]
     Active Substance: TACROLIMUS
     Indication: LUPUS NEPHRITIS
     Route: 048
     Dates: start: 20080319, end: 20080327
  26. PREDNISOLONE. [Suspect]
     Active Substance: PREDNISOLONE
     Route: 048
     Dates: start: 20080320, end: 20080409
  27. PREDNISOLONE. [Suspect]
     Active Substance: PREDNISOLONE
     Route: 048
     Dates: start: 20080529, end: 20080625
  28. PREDNISOLONE. [Suspect]
     Active Substance: PREDNISOLONE
     Route: 048
     Dates: start: 20091028, end: 20100119
  29. PREDNISOLONE. [Suspect]
     Active Substance: PREDNISOLONE
     Route: 048
     Dates: start: 20130117, end: 20130825
  30. PREDNISOLONE. [Suspect]
     Active Substance: PREDNISOLONE
     Route: 048
     Dates: start: 20150302
  31. BAYASPIRIN [Concomitant]
     Active Substance: ASPIRIN
     Indication: LUPUS NEPHRITIS
     Route: 048
     Dates: end: 20110704
  32. NU-LOTAN [Concomitant]
     Active Substance: LOSARTAN POTASSIUM
     Indication: LUPUS NEPHRITIS
     Route: 048
     Dates: start: 20080724
  33. FERROMIA [Concomitant]
     Active Substance: FERROUS CITRATE
     Indication: ANAEMIA
     Route: 048
     Dates: start: 20080626, end: 20081118
  34. CEFCAPENE PIVOXIL HYDROCHLORIDE [Concomitant]
     Active Substance: CEFCAPENE PIVOXIL HYDROCHLORIDE
     Indication: CYSTITIS
     Route: 065
  35. PREDNISOLONE. [Suspect]
     Active Substance: PREDNISOLONE
     Route: 048
     Dates: start: 20140707, end: 20140921
  36. BAKTAR [Concomitant]
     Active Substance: SULFAMETHOXAZOLE\TRIMETHOPRIM
     Indication: PRODUCT USED FOR UNKNOWN INDICATION
     Route: 048
     Dates: end: 20080625
  37. FERROMIA [Concomitant]
     Active Substance: FERROUS CITRATE
     Route: 048
     Dates: start: 20100224, end: 20110510
  38. ALFAROL [Concomitant]
     Active Substance: ALFACALCIDOL
     Indication: PROPHYLAXIS
     Dosage: 0.5 ?G, ONCE DAILY
     Route: 048
     Dates: start: 20100414
  39. PREDNISOLONE. [Suspect]
     Active Substance: PREDNISOLONE
     Route: 048
     Dates: start: 20111102, end: 20120523
  40. PREDNISOLONE. [Suspect]
     Active Substance: PREDNISOLONE
     Route: 048
     Dates: start: 20120524, end: 20120801
  41. PREDNISOLONE. [Suspect]
     Active Substance: PREDNISOLONE
     Route: 048
     Dates: start: 20140602, end: 20140706
  42. NU-LOTAN [Concomitant]
     Active Substance: LOSARTAN POTASSIUM
     Indication: NEPHROPROTECTIVE THERAPY
     Route: 048
     Dates: end: 20080322
  43. PREDNISOLONE. [Suspect]
     Active Substance: PREDNISOLONE
     Route: 048
     Dates: start: 20081023, end: 20090317
  44. PREDNISOLONE. [Suspect]
     Active Substance: PREDNISOLONE
     Route: 048
     Dates: start: 20090318, end: 20090421
  45. PREDNISOLONE. [Suspect]
     Active Substance: PREDNISOLONE
     Route: 048
     Dates: start: 20090624, end: 20090825
  46. PREDNISOLONE. [Suspect]
     Active Substance: PREDNISOLONE
     Route: 048
     Dates: start: 20121206, end: 20130116
  47. PREDNISOLONE. [Suspect]
     Active Substance: PREDNISOLONE
     Route: 048
     Dates: start: 20130930, end: 20131215
  48. PREDNISOLONE. [Suspect]
     Active Substance: PREDNISOLONE
     Route: 048
     Dates: start: 20140922, end: 20150301
  49. ISONARIF [Concomitant]
     Active Substance: ISONIAZID\RIFAMPIN
     Indication: PRODUCT USED FOR UNKNOWN INDICATION
     Route: 048
     Dates: end: 20080528
  50. BAYASPIRIN [Concomitant]
     Active Substance: ASPIRIN
     Route: 048
     Dates: start: 20120829

REACTIONS (7)
  - Platelet count increased [Recovered/Resolved]
  - Cystitis [Recovered/Resolved]
  - Pyelonephritis acute [Recovered/Resolved]
  - Anaemia [Recovered/Resolved]
  - Intentional product use issue [Unknown]
  - Calculus urinary [Recovered/Resolved]
  - Dysmenorrhoea [Recovering/Resolving]

NARRATIVE: CASE EVENT DATE: 20080409
